FAERS Safety Report 11410524 (Version 1)
Quarter: 2015Q3

REPORT INFORMATION
  Report Type: Spontaneous
  Country: US (occurrence: None)
  Receive Date: 20150820
  Receipt Date: 20150820
  Transmission Date: 20151125
  Serious: No
  Sender: FDA-Public Use
  Company Number: None

PATIENT
  Age: 66 Year
  Sex: Female

DRUGS (25)
  1. ADLT MULTIVI CHW GUMMIES [Concomitant]
  2. NITROGLYCER [Concomitant]
  3. TRIAMTHCTZ [Concomitant]
  4. ANASTROZOLE. [Concomitant]
     Active Substance: ANASTROZOLE
  5. FUROSEMIDE. [Concomitant]
     Active Substance: FUROSEMIDE
  6. LOPRESSOR [Concomitant]
     Active Substance: METOPROLOL TARTRATE
  7. NITRO-DUR [Concomitant]
     Active Substance: NITROGLYCERIN
  8. CITALOPRAM [Concomitant]
     Active Substance: CITALOPRAM HYDROBROMIDE
  9. PRAVASTATIN [Concomitant]
     Active Substance: PRAVASTATIN\PRAVASTATIN SODIUM
  10. AFINITOR [Suspect]
     Active Substance: EVEROLIMUS
     Indication: BREAST CANCER
     Route: 048
     Dates: start: 20150507
  11. FENOFIBRATE. [Concomitant]
     Active Substance: FENOFIBRATE
  12. FLAXSEED [Concomitant]
     Active Substance: FLAX SEED
  13. LISINOPRIL. [Concomitant]
     Active Substance: LISINOPRIL
  14. MICRO-K [Concomitant]
     Active Substance: POTASSIUM CHLORIDE
  15. CLINDAMYCIN [Concomitant]
     Active Substance: CLINDAMYCIN\CLINDAMYCIN PHOSPHATE
  16. ADVAIR DISKU AER [Concomitant]
  17. ASPIRIN. [Concomitant]
     Active Substance: ASPIRIN
  18. PROBIOTIC [Concomitant]
     Active Substance: PROBIOTICS NOS
  19. SELENIUM [Concomitant]
     Active Substance: SELENIUM
  20. ALBUTEROL. [Concomitant]
     Active Substance: ALBUTEROL
  21. EXEMESTANE. [Concomitant]
     Active Substance: EXEMESTANE
  22. KETOTIF FLIN DRO [Concomitant]
  23. AMLODIPINE BESYLATE. [Concomitant]
     Active Substance: AMLODIPINE BESYLATE
  24. METFORMIN [Concomitant]
     Active Substance: METFORMIN HYDROCHLORIDE
  25. NOVOLIN N [Concomitant]
     Active Substance: INSULIN HUMAN

REACTIONS (3)
  - Myocardial infarction [None]
  - Therapy cessation [None]
  - Stomatitis [None]

NARRATIVE: CASE EVENT DATE: 20150720
